FAERS Safety Report 23230354 (Version 1)
Quarter: 2023Q4

REPORT INFORMATION
  Report Type: Spontaneous
  Country: US (occurrence: US)
  Receive Date: 20231127
  Receipt Date: 20231127
  Transmission Date: 20240109
  Serious: Yes (Hospitalization)
  Sender: FDA-Public Use
  Company Number: US-SA-SAC20231123001574

PATIENT
  Age: 69 Year
  Sex: Female

DRUGS (1)
  1. DUPIXENT [Suspect]
     Active Substance: DUPILUMAB
     Indication: Asthma
     Dosage: 300 MG, QOW
     Route: 058
     Dates: start: 20210204

REACTIONS (3)
  - Fall [Not Recovered/Not Resolved]
  - Asthma [Not Recovered/Not Resolved]
  - Impaired quality of life [Not Recovered/Not Resolved]

NARRATIVE: CASE EVENT DATE: 20231001
